FAERS Safety Report 13666130 (Version 1)
Quarter: 2017Q2

REPORT INFORMATION
  Report Type: Spontaneous
  Country: US (occurrence: US)
  Receive Date: 20170619
  Receipt Date: 20170619
  Transmission Date: 20170830
  Serious: No
  Sender: FDA-Public Use
  Company Number: US-ROCHE-1386268

PATIENT
  Sex: Female

DRUGS (5)
  1. XELODA [Suspect]
     Active Substance: CAPECITABINE
     Indication: METASTATIC NEOPLASM
     Dosage: 7 DAYS ON; 7 DAYS OFF
     Route: 048
     Dates: end: 20140401
  2. CLARITIN [Concomitant]
     Active Substance: LORATADINE
     Route: 065
  3. XELODA [Suspect]
     Active Substance: CAPECITABINE
     Dosage: 7 DAYS ON, 7 DAYS OFF
     Route: 048
     Dates: end: 20140401
  4. TARCEVA [Suspect]
     Active Substance: ERLOTINIB HYDROCHLORIDE
     Indication: PRODUCT USED FOR UNKNOWN INDICATION
     Route: 065
  5. OXYCONTIN [Concomitant]
     Active Substance: OXYCODONE HYDROCHLORIDE
     Route: 065

REACTIONS (1)
  - Bone pain [Unknown]
